FAERS Safety Report 9110619 (Version 1)
Quarter: 2013Q1

REPORT INFORMATION
  Report Type: Spontaneous
  Country: US (occurrence: US)
  Receive Date: 20130219
  Receipt Date: 20130219
  Transmission Date: 20140127
  Serious: No
  Sender: FDA-Public Use
  Company Number: US-BRISTOL-MYERS SQUIBB COMPANY-16591117

PATIENT
  Age: 63 Year
  Sex: Female
  Weight: 103.85 kg

DRUGS (3)
  1. ORENCIA FOR INJ [Suspect]
     Indication: RHEUMATOID ARTHRITIS
     Dosage: RECENT INF 10MAY12,21OCT12 ALSO TAKEN 250MG
     Route: 042
     Dates: start: 20120510
  2. CORTISONE [Concomitant]
  3. PREDNISONE [Concomitant]

REACTIONS (4)
  - Influenza like illness [Not Recovered/Not Resolved]
  - Pain in extremity [Not Recovered/Not Resolved]
  - Local swelling [Unknown]
  - Drug ineffective [Unknown]
